FAERS Safety Report 17839059 (Version 1)
Quarter: 2020Q2

REPORT INFORMATION
  Report Type: Spontaneous
  Country: US (occurrence: US)
  Receive Date: 20200528
  Receipt Date: 20200528
  Transmission Date: 20200714
  Serious: No
  Sender: FDA-Public Use
  Company Number: None

PATIENT
  Age: 56 Year
  Sex: Female

DRUGS (7)
  1. FLUOROURACIL 5% CREAM [Concomitant]
     Active Substance: FLUOROURACIL
     Dates: start: 20200102, end: 20200528
  2. OXYCODONE 10MG [Concomitant]
     Active Substance: OXYCODONE
     Dates: start: 20200511, end: 20200528
  3. FORTEO [Suspect]
     Active Substance: TERIPARATIDE
     Route: 058
     Dates: start: 20191028
  4. RESTORIL 30MG [Concomitant]
     Dates: start: 20200527, end: 20200528
  5. FLUTICASONE 50MCG NS [Concomitant]
     Dates: start: 20191108, end: 20200528
  6. ALPRAZOLAM 0.5MG [Concomitant]
     Active Substance: ALPRAZOLAM
     Dates: start: 20200527, end: 20200528
  7. MECLIZINE 12.5MG [Concomitant]
     Dates: start: 20191108, end: 20200528

REACTIONS (2)
  - Rash [None]
  - Product quality issue [None]

NARRATIVE: CASE EVENT DATE: 20200401
